FAERS Safety Report 10046808 (Version 2)
Quarter: 2014Q1

REPORT INFORMATION
  Report Type: Report from Study
  Country: ES (occurrence: ES)
  Receive Date: 20140331
  Receipt Date: 20140331
  Transmission Date: 20141002
  Serious: Yes (Death, Life-Threatening, Hospitalization)
  Sender: FDA-Public Use
  Company Number: ES-TEVA-465032USA

PATIENT
  Age: 46 Year
  Sex: Male

DRUGS (23)
  1. BENDAMUSTINE [Suspect]
     Indication: PLASMA CELL MYELOMA
     Route: 042
     Dates: start: 20130429, end: 20130527
  2. BENDAMUSTINE [Suspect]
     Indication: PLASMA CELL MYELOMA
     Route: 042
     Dates: start: 20130527, end: 20130701
  3. BENDAMUSTINE [Suspect]
     Indication: PLASMA CELL MYELOMA
     Route: 042
     Dates: start: 20130701, end: 20130729
  4. BENDAMUSTINE [Suspect]
     Indication: PLASMA CELL MYELOMA
     Route: 042
     Dates: start: 20130826, end: 20130922
  5. BENDAMUSTINE [Suspect]
     Indication: PLASMA CELL MYELOMA
     Route: 042
     Dates: start: 20131014, end: 20131110
  6. DEXAMETHASONE [Suspect]
     Indication: PLASMA CELL MYELOMA
     Route: 065
     Dates: start: 20130429, end: 20130527
  7. DEXAMETHASONE [Suspect]
     Indication: PLASMA CELL MYELOMA
     Route: 065
     Dates: start: 20130527, end: 20130701
  8. DEXAMETHASONE [Suspect]
     Indication: PLASMA CELL MYELOMA
     Route: 065
     Dates: start: 20130701, end: 20130729
  9. DEXAMETHASONE [Suspect]
     Indication: PLASMA CELL MYELOMA
     Route: 065
     Dates: start: 20130826, end: 20130922
  10. DEXAMETHASONE [Suspect]
     Indication: PLASMA CELL MYELOMA
     Route: 065
     Dates: start: 20131014, end: 20131110
  11. DEXAMETHASONE [Suspect]
     Indication: PLASMA CELL MYELOMA
     Route: 065
     Dates: start: 20131111, end: 20140120
  12. LENALIDOMIDE [Suspect]
     Indication: PLASMA CELL MYELOMA
     Route: 065
     Dates: start: 20130429, end: 20130527
  13. LENALIDOMIDE [Suspect]
     Indication: PLASMA CELL MYELOMA
     Route: 065
     Dates: start: 20130527, end: 20130701
  14. LENALIDOMIDE [Suspect]
     Indication: PLASMA CELL MYELOMA
     Route: 065
     Dates: start: 20130701, end: 20130729
  15. LENALIDOMIDE [Suspect]
     Indication: PLASMA CELL MYELOMA
     Route: 065
     Dates: start: 20130826, end: 20130922
  16. LENALIDOMIDE [Suspect]
     Indication: PLASMA CELL MYELOMA
     Route: 065
     Dates: start: 20131014, end: 20131110
  17. LENALIDOMIDE [Suspect]
     Indication: PLASMA CELL MYELOMA
     Route: 065
     Dates: start: 20131111, end: 20140120
  18. BORTEZOMIB [Suspect]
     Dates: start: 20130429, end: 20130527
  19. BORTEZOMIB [Suspect]
     Dates: start: 20130527, end: 20130701
  20. BORTEZOMIB [Suspect]
     Dates: start: 20130701, end: 20130729
  21. BORTEZOMIB [Suspect]
     Dates: start: 20130826, end: 20130922
  22. BORTEZOMIB [Suspect]
     Dates: start: 20131014, end: 20131110
  23. BORTEZOMIB [Suspect]
     Dates: start: 20131111, end: 20140120

REACTIONS (3)
  - Plasma cell myeloma [Fatal]
  - Pancytopenia [Recovered/Resolved]
  - Respiratory tract infection [Recovered/Resolved]
